FAERS Safety Report 9146763 (Version 1)
Quarter: 2013Q1

REPORT INFORMATION
  Report Type: Spontaneous
  Country: US (occurrence: None)
  Receive Date: 20130228
  Receipt Date: 20130228
  Transmission Date: 20140127
  Serious: No
  Sender: FDA-Public Use
  Company Number: None

PATIENT
  Sex: Female

DRUGS (1)
  1. COPAXONE [Suspect]
     Indication: MULTIPLE SCLEROSIS
     Route: 058
     Dates: start: 20120323

REACTIONS (6)
  - Nausea [None]
  - Palpitations [None]
  - Chest pain [None]
  - Feeling abnormal [None]
  - Dysgeusia [None]
  - Dyspnoea [None]
